FAERS Safety Report 24581463 (Version 1)
Quarter: 2024Q4

REPORT INFORMATION
  Report Type: Spontaneous
  Country: US (occurrence: US)
  Receive Date: 20241105
  Receipt Date: 20241105
  Transmission Date: 20250115
  Serious: Yes (Death, Hospitalization, Other)
  Sender: MERCK
  Company Number: US-009507513-2410USA013397

PATIENT
  Age: 74 Year
  Sex: Male
  Weight: 80.726 kg

DRUGS (3)
  1. KEYTRUDA [Suspect]
     Active Substance: PEMBROLIZUMAB
     Indication: Squamous cell carcinoma of the hypopharynx
     Dosage: 200 MILLIGRAM, Q3W
     Route: 042
     Dates: start: 20190822, end: 20190912
  2. KEYTRUDA [Suspect]
     Active Substance: PEMBROLIZUMAB
     Indication: Metastases to lymph nodes
  3. KEYTRUDA [Suspect]
     Active Substance: PEMBROLIZUMAB
     Indication: Hypopharyngeal cancer recurrent

REACTIONS (13)
  - Pneumonitis [Fatal]
  - Respiratory failure [Fatal]
  - Malignant neoplasm progression [Fatal]
  - Acute kidney injury [Fatal]
  - Ataxia [Unknown]
  - Dizziness [Unknown]
  - Headache [Unknown]
  - Back pain [Unknown]
  - Fall [Unknown]
  - Skin laceration [Unknown]
  - Haemoptysis [Unknown]
  - Pleural effusion [Unknown]
  - Stoma complication [Unknown]

NARRATIVE: CASE EVENT DATE: 20190915
